FAERS Safety Report 10163254 (Version 1)
Quarter: 2014Q2

REPORT INFORMATION
  Report Type: Spontaneous
  Country: US (occurrence: US)
  Receive Date: 20140509
  Receipt Date: 20140509
  Transmission Date: 20141212
  Serious: No
  Sender: FDA-Public Use
  Company Number: US-ASTRAZENECA-2013SE88912

PATIENT
  Age: 61 Year
  Sex: Female
  Weight: 66.7 kg

DRUGS (6)
  1. FASLODEX [Suspect]
     Indication: BREAST CANCER METASTATIC
     Dosage: 2 SHOTS 250 MG EACH
     Route: 030
     Dates: start: 201309
  2. FASLODEX [Suspect]
     Indication: BREAST CANCER METASTATIC
     Route: 030
     Dates: start: 201309
  3. LINZESS [Suspect]
     Indication: IRRITABLE BOWEL SYNDROME
     Route: 065
  4. THYROID MEDICATION [Concomitant]
  5. BYSTOLIC [Concomitant]
     Indication: EXTRASYSTOLES
  6. ALLERGY MEDICATIONS [Concomitant]

REACTIONS (6)
  - Dry eye [Not Recovered/Not Resolved]
  - Sinus disorder [Not Recovered/Not Resolved]
  - Dry mouth [Not Recovered/Not Resolved]
  - Dry throat [Not Recovered/Not Resolved]
  - Injection site pain [Unknown]
  - Headache [Not Recovered/Not Resolved]
